FAERS Safety Report 5614867-2 (Version None)
Quarter: 2008Q1

REPORT INFORMATION
  Report Type: 
  Country: None (occurrence: None)
  Receive Date: 20080131
  Receipt Date: 20080125
  Transmission Date: 20080703
  Serious: Yes (Hospitalization)
  Sender: FDA-Public Use
  Company Number: 2008-00463

PATIENT
  Age: 35 Year
  Sex: Female

DRUGS (1)
  1. MINOCYCLINE HYDROCHLORIDE [Suspect]
     Indication: CUTANEOUS SARCOIDOSIS
     Dosage: 200 MG DAILY X 2.5 YEARS, ORAL
     Route: 048
     Dates: start: 20040101, end: 20070101

REACTIONS (1)
  - PAPILLARY THYROID CANCER [None]
